FAERS Safety Report 6409236-1 (Version None)
Quarter: 2009Q4

REPORT INFORMATION
  Report Type: 
  Country: None (occurrence: None)
  Receive Date: 20091021
  Receipt Date: 20091015
  Transmission Date: 20100525
  Serious: Yes (Hospitalization)
  Sender: FDA-Public Use
  Company Number: US-AVENTIS-200917365US

PATIENT
  Age: 52 Year
  Sex: Female

DRUGS (3)
  1. LOVENOX [Suspect]
     Indication: ANTICOAGULANT THERAPY
     Dates: start: 20090810
  2. LOVENOX [Suspect]
     Dosage: DOSE: UNK
  3. COUMADIN [Concomitant]
     Dosage: DOSE: UNK

REACTIONS (5)
  - INJECTION SITE HAEMATOMA [None]
  - INJECTION SITE HAEMORRHAGE [None]
  - INJECTION SITE PAIN [None]
  - INTERNATIONAL NORMALISED RATIO INCREASED [None]
  - RETROPERITONEAL HAEMORRHAGE [None]
